FAERS Safety Report 6335477-8 (Version None)
Quarter: 2009Q3

REPORT INFORMATION
  Report Type: 
  Country: None (occurrence: None)
  Receive Date: 20090831
  Receipt Date: 20090824
  Transmission Date: 20100115
  Serious: Yes (Other)
  Sender: FDA-Public Use
  Company Number: US-JNJFOC-20090808123

PATIENT
  Age: 73 Year
  Sex: Female
  Weight: 46.27 kg

DRUGS (1)
  1. SIMPLY SLEEP NIGHTTIME [Suspect]
     Indication: INSOMNIA
     Dosage: NIGHTLY
     Route: 048

REACTIONS (1)
  - DRUG DEPENDENCE [None]
